FAERS Safety Report 17508998 (Version 2)
Quarter: 2020Q3

REPORT INFORMATION
  Report Type: Spontaneous
  Country: US (occurrence: US)
  Receive Date: 20200306
  Receipt Date: 20200924
  Transmission Date: 20201102
  Serious: Yes (Other)
  Sender: FDA-Public Use
  Company Number: US-BAYER-2020-037963

PATIENT
  Age: 22 Year
  Sex: Female
  Weight: 69.9 kg

DRUGS (1)
  1. KYLEENA [Suspect]
     Active Substance: LEVONORGESTREL
     Indication: CONTRACEPTION
     Dosage: 17.5 ?G PER DAY CONTINUOUSLY
     Route: 015
     Dates: start: 20190529, end: 20200809

REACTIONS (4)
  - Pregnancy with contraceptive device [None]
  - Premature separation of placenta [None]
  - Premature labour [None]
  - Drug ineffective [None]

NARRATIVE: CASE EVENT DATE: 20200202
